FAERS Safety Report 4378145-4 (Version None)
Quarter: 2004Q2

REPORT INFORMATION
  Report Type: 
  Country: None (occurrence: None)
  Receive Date: 20040616
  Receipt Date: 20040427
  Transmission Date: 20050107
  Serious: Yes (Other)
  Sender: FDA-Public Use
  Company Number: PHBS2004CA05847

PATIENT
  Sex: Female

DRUGS (1)
  1. ESTRADIOL [Suspect]
     Dosage: 50 UG/DAY
     Route: 062

REACTIONS (4)
  - BLOOD PRESSURE INCREASED [None]
  - CEREBRAL VASOCONSTRICTION [None]
  - EYE HAEMORRHAGE [None]
  - MIGRAINE [None]
